FAERS Safety Report 23786157 (Version 3)
Quarter: 2024Q3

REPORT INFORMATION
  Report Type: Report from Study
  Country: US (occurrence: US)
  Receive Date: 20240426
  Receipt Date: 20240809
  Transmission Date: 20241017
  Serious: Yes (Death, Hospitalization)
  Sender: INSMED
  Company Number: US-INSMED, INC.-2024-01580-US

PATIENT
  Sex: Female

DRUGS (2)
  1. ARIKAYCE [Suspect]
     Active Substance: AMIKACIN
     Indication: Product used for unknown indication
     Dosage: 590 MILLIGRAM, QD
     Route: 055
     Dates: start: 20240331, end: 2024
  2. AMIKACIN [Concomitant]
     Active Substance: AMIKACIN
     Indication: Product used for unknown indication
     Dosage: UNK, QD
     Route: 042

REACTIONS (4)
  - Death [Fatal]
  - Gait disturbance [Unknown]
  - Dyspnoea [Unknown]
  - Therapy interrupted [Unknown]

NARRATIVE: CASE EVENT DATE: 20240101
